FAERS Safety Report 10892582 (Version 2)
Quarter: 2015Q1

REPORT INFORMATION
  Report Type: Spontaneous
  Country: IT (occurrence: IT)
  Receive Date: 20150306
  Receipt Date: 20150311
  Transmission Date: 20150721
  Serious: Yes (Hospitalization)
  Sender: FDA-Public Use
  Company Number: PHHY2015IT022513

PATIENT
  Sex: Female

DRUGS (1)
  1. ATENOLOL+CHLORTHALIDONE [Suspect]
     Active Substance: ATENOLOL\CHLORTHALIDONE
     Indication: HYPERTENSION
     Dosage: 62.5 MG, QD
     Route: 048
     Dates: start: 20150117, end: 20150124

REACTIONS (4)
  - Tremor [Recovering/Resolving]
  - Peripheral coldness [Recovering/Resolving]
  - Anxiety [Recovering/Resolving]
  - Dry throat [Recovering/Resolving]

NARRATIVE: CASE EVENT DATE: 20150119
